FAERS Safety Report 24909291 (Version 1)
Quarter: 2025Q1

REPORT INFORMATION
  Report Type: Spontaneous
  Country: US (occurrence: None)
  Receive Date: 20250130
  Receipt Date: 20250130
  Transmission Date: 20250408
  Serious: Yes (Hospitalization)
  Sender: FDA-CTU
  Company Number: None

PATIENT
  Sex: Male

DRUGS (1)
  1. SYNAGIS [Suspect]
     Active Substance: PALIVIZUMAB
     Indication: Premature baby
     Dosage: 15MG PER KG ONCE A MONTH INTRAMUSCULAR
     Route: 030
     Dates: start: 202412

REACTIONS (2)
  - Respiratory syncytial virus infection [None]
  - Neonatal infection [None]
